FAERS Safety Report 6591540-8 (Version None)
Quarter: 2010Q1

REPORT INFORMATION
  Report Type: 
  Country: None (occurrence: None)
  Receive Date: 20100220
  Receipt Date: 20100211
  Transmission Date: 20100710
  Serious: Yes (Hospitalization)
  Sender: FDA-Public Use
  Company Number: US-JNJFOC-20100107382

PATIENT
  Sex: Female
  Weight: 61.24 kg

DRUGS (11)
  1. FENTANYL-100 [Suspect]
     Indication: EYE PAIN
     Route: 062
  2. FENTANYL-100 [Suspect]
     Route: 062
  3. FENTANYL-100 [Suspect]
     Dosage: 100UG/HR PLUS 75UG/HR PATCHES
     Route: 062
  4. FENTANYL CITRATE [Suspect]
     Indication: PAIN
     Route: 062
  5. VALIUM [Suspect]
     Indication: PANIC ATTACK
     Route: 048
  6. VALIUM [Suspect]
     Indication: ANXIETY
     Route: 048
  7. SYNTHROID [Concomitant]
     Indication: HYPOTHYROIDISM
     Route: 048
  8. OXYCODONE HCL [Concomitant]
     Indication: BREAKTHROUGH PAIN
     Dosage: AS NEEDED
     Route: 048
  9. DIOVAN [Concomitant]
     Indication: BLOOD PRESSURE
     Dosage: 80/12.5 MG
     Route: 048
  10. PREDNISONE TAB [Concomitant]
     Indication: INFLAMMATION
     Dosage: ONE DROP TWICE DAILY
     Route: 047
  11. ATROPINE [Concomitant]
     Indication: INFLAMMATION
     Dosage: 170 (ONE DROP DAILY IN RIGHT EYE)
     Route: 047

REACTIONS (27)
  - ANXIETY [None]
  - BURNING SENSATION [None]
  - CYSTITIS [None]
  - EATING DISORDER [None]
  - FOREIGN BODY IN EYE [None]
  - FORMICATION [None]
  - HEADACHE [None]
  - HEPATIC FUNCTION ABNORMAL [None]
  - HERPES VIRUS INFECTION [None]
  - HYPERSENSITIVITY [None]
  - HYPERTENSION [None]
  - HYPOTENSION [None]
  - INSOMNIA [None]
  - LIP SWELLING [None]
  - MALAISE [None]
  - MUSCLE TIGHTNESS [None]
  - NAUSEA [None]
  - NEPHROLITHIASIS [None]
  - NEURALGIA [None]
  - OCULAR SARCOIDOSIS [None]
  - PANIC ATTACK [None]
  - RENAL IMPAIRMENT [None]
  - RETCHING [None]
  - STEREOTYPY [None]
  - THERAPY CESSATION [None]
  - URTICARIA [None]
  - WEIGHT INCREASED [None]
